FAERS Safety Report 6444376-2 (Version None)
Quarter: 2009Q4

REPORT INFORMATION
  Report Type: 
  Country: None (occurrence: None)
  Receive Date: 20091118
  Receipt Date: 20091116
  Transmission Date: 20100525
  Serious: Yes (Life-Threatening)
  Sender: FDA-Public Use
  Company Number: FR-WYE-G04884909

PATIENT
  Age: 6 Year
  Sex: Female

DRUGS (6)
  1. ADVIL ENFANTS ET NOURRISSONS [Suspect]
     Indication: TONSILLITIS
     Dosage: ONE SINGLE DOSE AT 08.00 AM
     Route: 048
     Dates: start: 20070910, end: 20070910
  2. ADVIL ENFANTS ET NOURRISSONS [Suspect]
     Indication: PYREXIA
  3. ORELOX [Suspect]
     Indication: TONSILLITIS
     Dosage: ONE SINGLE DOSE AT 12.30 PM
     Route: 048
     Dates: start: 20070910, end: 20070910
  4. ORELOX [Suspect]
     Indication: PYREXIA
  5. DOLIPRANE [Suspect]
     Indication: TONSILLITIS
     Dosage: ONE SINGLE DOSE AT 01.00 PM
     Route: 048
     Dates: start: 20070910, end: 20070910
  6. DOLIPRANE [Suspect]
     Indication: PYREXIA

REACTIONS (2)
  - LIP OEDEMA [None]
  - URTICARIA [None]
